FAERS Safety Report 6215636-5 (Version None)
Quarter: 2009Q2

REPORT INFORMATION
  Report Type: 
  Country: None (occurrence: None)
  Receive Date: 20090603
  Receipt Date: 20090520
  Transmission Date: 20091009
  Serious: Yes (Hospitalization)
  Sender: FDA-Public Use
  Company Number: DAV-AE-MTX-09-029

PATIENT
  Age: 49 Year
  Sex: Female

DRUGS (5)
  1. METHOTREXATE [Suspect]
     Dosage: 8 MG 1 WEEK
  2. ABATACEPT [Concomitant]
  3. FOLIAMIN [Concomitant]
  4. FERROMIA [Concomitant]
  5. DERMOVATE [Concomitant]

REACTIONS (4)
  - BREAST CANCER FEMALE [None]
  - CHOLELITHIASIS [None]
  - MASTITIS [None]
  - SKIN DISORDER [None]
